FAERS Safety Report 19125414 (Version 1)
Quarter: 2021Q2

REPORT INFORMATION
  Report Type: Report from Study
  Country: GB (occurrence: GB)
  Receive Date: 20210412
  Receipt Date: 20210412
  Transmission Date: 20210717
  Serious: Yes (Death)
  Sender: FDA-Public Use
  Company Number: GB-ASTRAZENECA-2021A282481

PATIENT
  Sex: Male

DRUGS (1)
  1. FASENRA [Suspect]
     Active Substance: BENRALIZUMAB
     Indication: ASTHMA
     Dosage: 30.0MG UNKNOWN
     Route: 058

REACTIONS (1)
  - Death [Fatal]
